FAERS Safety Report 21987412 (Version 2)
Quarter: 2024Q1

REPORT INFORMATION
  Report Type: Spontaneous
  Country: GB (occurrence: GB)
  Receive Date: 20230214
  Receipt Date: 20240209
  Transmission Date: 20240410
  Serious: Yes (Other)
  Sender: FDA-Public Use
  Company Number: None

PATIENT
  Age: 34 Year
  Sex: Male
  Weight: 72 kg

DRUGS (3)
  1. CEPHALEXIN [Suspect]
     Active Substance: CEPHALEXIN
     Indication: Ill-defined disorder
     Dosage: UNK
     Route: 065
     Dates: start: 20220614
  2. CEPHALEXIN [Concomitant]
     Active Substance: CEPHALEXIN
     Indication: Ill-defined disorder
     Dosage: 1 DOSAGE FORM, TID (TAKE ONE CAPSULE THREE TIMES DAILY)
     Route: 065
     Dates: start: 20220610
  3. PENICILLIN V [Concomitant]
     Active Substance: PENICILLIN V
     Indication: Ill-defined disorder
     Dosage: 2 DOSAGE FORM, QID (TABLET) 4 TIMES DAILY
     Route: 065
     Dates: start: 20220614

REACTIONS (2)
  - Rash macular [Unknown]
  - Rash [Recovered/Resolved]

NARRATIVE: CASE EVENT DATE: 20220614
